FAERS Safety Report 18862075 (Version 5)
Quarter: 2021Q2

REPORT INFORMATION
  Report Type: Spontaneous
  Country: JP (occurrence: JP)
  Receive Date: 20210208
  Receipt Date: 20210526
  Transmission Date: 20210717
  Serious: Yes (Other)
  Sender: FDA-Public Use
  Company Number: NVSJ2021JP001953

PATIENT
  Age: 81 Year
  Sex: Male
  Weight: 58.8 kg

DRUGS (6)
  1. CEFTRIAXONE. [Concomitant]
     Active Substance: CEFTRIAXONE
     Indication: PRODUCT USED FOR UNKNOWN INDICATION
     Dosage: 2 G, QD
     Route: 065
     Dates: start: 20210113, end: 20210125
  2. PREDONINE [Concomitant]
     Active Substance: PREDNISOLONE
     Indication: PUSTULAR PSORIASIS
     Dosage: 30 MG
     Route: 041
     Dates: start: 20210118, end: 20210121
  3. COSENTYX [Suspect]
     Active Substance: SECUKINUMAB
     Indication: PUSTULAR PSORIASIS
     Dosage: 300 MG, QW, 5 CONSECUTIVE WEEKS
     Route: 058
     Dates: start: 20210121
  4. PREDONINE [Concomitant]
     Active Substance: PREDNISOLONE
     Dosage: 20 MG
     Route: 041
     Dates: start: 20210122, end: 20210125
  5. PREDNISOLONE. [Concomitant]
     Active Substance: PREDNISOLONE
     Indication: PUSTULAR PSORIASIS
     Dosage: 10 MG
     Route: 048
     Dates: start: 20210126, end: 20210128
  6. TIGASON [Concomitant]
     Indication: PUSTULAR PSORIASIS
     Dosage: 50 MG
     Route: 048
     Dates: start: 20210113, end: 20210131

REACTIONS (2)
  - Enterococcal infection [Not Recovered/Not Resolved]
  - Eosinophilia [Not Recovered/Not Resolved]

NARRATIVE: CASE EVENT DATE: 20210127
